FAERS Safety Report 9204078 (Version 2)
Quarter: 2013Q2

REPORT INFORMATION
  Report Type: Spontaneous
  Country: CO (occurrence: CO)
  Receive Date: 20130402
  Receipt Date: 20130409
  Transmission Date: 20140414
  Serious: Yes (Other)
  Sender: FDA-Public Use
  Company Number: CO-AMGEN-COLSP2013021521

PATIENT
  Age: 62 Year
  Sex: Female

DRUGS (6)
  1. ENBREL [Suspect]
     Indication: RHEUMATOID ARTHRITIS
     Dosage: 50 MG, WEEKLY
     Route: 058
     Dates: start: 2010
  2. OMEPRAZOL                          /00661201/ [Concomitant]
     Indication: PROPHYLAXIS
     Dosage: UNK
     Route: 048
     Dates: start: 2006
  3. METHOTREXATE [Concomitant]
     Indication: RHEUMATOID ARTHRITIS
     Dosage: 50MG (0.7 MG), WEEKLY
     Route: 058
     Dates: start: 2008
  4. CALCITRIOL [Concomitant]
     Indication: OSTEOPOROSIS
     Dosage: UNK
     Route: 048
     Dates: start: 2009
  5. FOLIC ACID [Concomitant]
     Dosage: UNK
     Route: 048
     Dates: start: 2009
  6. CALCIUM [Concomitant]
     Indication: OSTEOPOROSIS
     Dosage: 600 MG, 1X/DAY
     Route: 048
     Dates: start: 2009

REACTIONS (3)
  - Cough [Not Recovered/Not Resolved]
  - Increased upper airway secretion [Recovered/Resolved]
  - Cerebrovascular accident [Recovered/Resolved]
